FAERS Safety Report 9879240 (Version 1)
Quarter: 2014Q1

REPORT INFORMATION
  Report Type: Spontaneous
  Country: IT (occurrence: IT)
  Receive Date: 20140206
  Receipt Date: 20140206
  Transmission Date: 20141002
  Serious: Yes (Other)
  Sender: FDA-Public Use
  Company Number: IT-ROXANE LABORATORIES, INC.-2014-RO-00146RO

PATIENT
  Age: 61 Year
  Sex: Female

DRUGS (1)
  1. CLARITHROMYCIN [Suspect]
     Indication: PNEUMONIA

REACTIONS (3)
  - Immune thrombocytopenic purpura [Recovered/Resolved]
  - Dermatomyositis [Recovered/Resolved]
  - Normochromic normocytic anaemia [Unknown]
